FAERS Safety Report 4931416-2 (Version None)
Quarter: 2006Q1

REPORT INFORMATION
  Report Type: 
  Country: None (occurrence: None)
  Receive Date: 20060303
  Receipt Date: 20051005
  Transmission Date: 20060701
  Serious: Yes (Hospitalization)
  Sender: FDA-Public Use
  Company Number: US-MERCK-0510USA04291

PATIENT
  Age: 55 Year
  Sex: Male
  Weight: 76 kg

DRUGS (4)
  1. VIOXX [Suspect]
     Indication: ARTHRITIS
     Route: 048
     Dates: start: 20030225, end: 20040930
  2. VIOXX [Suspect]
     Route: 048
     Dates: start: 20010901
  3. VIOXX [Suspect]
     Indication: ARTHROPATHY
     Route: 048
     Dates: start: 20030225, end: 20040930
  4. VIOXX [Suspect]
     Route: 048
     Dates: start: 20010901

REACTIONS (3)
  - COLONIC POLYP [None]
  - GASTRITIS [None]
  - MYOCARDIAL INFARCTION [None]
